FAERS Safety Report 26202839 (Version 1)
Quarter: 2025Q4

REPORT INFORMATION
  Report Type: Spontaneous
  Country: US (occurrence: US)
  Receive Date: 20251226
  Receipt Date: 20251226
  Transmission Date: 20260117
  Serious: Yes (Other)
  Sender: INSMED
  Company Number: US-INSMED, INC.-2025-09125-US

PATIENT
  Sex: Female

DRUGS (1)
  1. BRINSUPRI [Suspect]
     Active Substance: BRENSOCATIB
     Indication: Heterotaxia
     Dosage: UNK, QD
     Route: 048
     Dates: start: 20251117

REACTIONS (2)
  - Lung transplant [Unknown]
  - Off label use [Unknown]

NARRATIVE: CASE EVENT DATE: 20250101
